FAERS Safety Report 19289462 (Version 2)
Quarter: 2021Q2

REPORT INFORMATION
  Report Type: Report from Study
  Country: HN (occurrence: HN)
  Receive Date: 20210521
  Receipt Date: 20210602
  Transmission Date: 20210717
  Serious: Yes (Hospitalization)
  Sender: FDA-Public Use
  Company Number: NVSC2021HN111140

PATIENT
  Sex: Female
  Weight: 88.89 kg

DRUGS (6)
  1. TRAYENTA DUO [Concomitant]
     Active Substance: LINAGLIPTIN\METFORMIN HYDROCHLORIDE
     Indication: PRODUCT USED FOR UNKNOWN INDICATION
     Dosage: 1 DF, QD,  (STARTED APPROXIMATELY 15 DAYS AGO)
     Route: 048
  2. EXFORGE [Suspect]
     Active Substance: AMLODIPINE BESYLATE\VALSARTAN
     Indication: PRODUCT USED FOR UNKNOWN INDICATION
     Dosage: 1 DF, QD ( STARTED PPROXIMATELY 8 YEARS AGO)
     Route: 065
     Dates: end: 20210513
  3. EXFORGE HCT [Suspect]
     Active Substance: AMLODIPINE BESYLATE\HYDROCHLOROTHIAZIDE\VALSARTAN
     Indication: PRODUCT USED FOR UNKNOWN INDICATION
     Dosage: 5/160/12.5 MG, (STARTED APPROXIMATELY 8?10 AGO AS REPORTED)
     Route: 065
  4. ESOMEPRAZOLE. [Concomitant]
     Active Substance: ESOMEPRAZOLE MAGNESIUM
     Indication: PRODUCT USED FOR UNKNOWN INDICATION
     Dosage: 1 DF, QD, (STARTED APPROXIMATELY 15 DAYS AGO)
     Route: 048
  5. CALBOR [Concomitant]
     Indication: PRODUCT USED FOR UNKNOWN INDICATION
     Dosage: 5 MG, QD, STARTED APPROXIMATELY 15 DAYS AGO)
     Route: 048
  6. GALVUS [Suspect]
     Active Substance: VILDAGLIPTIN
     Indication: DIABETES MELLITUS
     Dosage: 50 MG, (STARTED APPROXIMATELY 4 YEARS AGO)
     Route: 048

REACTIONS (5)
  - Blood sodium decreased [Unknown]
  - Asthenia [Unknown]
  - Somnolence [Unknown]
  - Overdose [Unknown]
  - Discomfort [Unknown]
